FAERS Safety Report 11128002 (Version 1)
Quarter: 2015Q2

REPORT INFORMATION
  Report Type: Spontaneous
  Country: US (occurrence: None)
  Receive Date: 20150520
  Receipt Date: 20150520
  Transmission Date: 20150821
  Serious: No
  Sender: FDA-Public Use
  Company Number: None

PATIENT
  Age: 49 Year
  Sex: Female
  Weight: 64.41 kg

DRUGS (3)
  1. MIRTAZAPINE 30 SANDOZ [Suspect]
     Active Substance: MIRTAZAPINE
     Indication: IRRITABLE BOWEL SYNDROME
     Dosage: HALF?AT BEDTIME?TAKEN BY MOUTH
     Route: 048
  2. MIRTAZAPINE 30 SANDOZ [Suspect]
     Active Substance: MIRTAZAPINE
     Indication: SLEEP DISORDER
     Dosage: HALF?AT BEDTIME?TAKEN BY MOUTH
     Route: 048
  3. MIRTAZAPINE 30 SANDOZ [Suspect]
     Active Substance: MIRTAZAPINE
     Dosage: HALF?AT BEDTIME?TAKEN BY MOUTH
     Route: 048

REACTIONS (1)
  - Headache [None]

NARRATIVE: CASE EVENT DATE: 20150515
